FAERS Safety Report 11444493 (Version 1)
Quarter: 2015Q3

REPORT INFORMATION
  Report Type: Spontaneous
  Country: IN (occurrence: IN)
  Receive Date: 20150902
  Receipt Date: 20150902
  Transmission Date: 20151125
  Serious: Yes (Other)
  Sender: FDA-Public Use
  Company Number: IN-SUN PHARMACEUTICAL INDUSTRIES LTD-2015R1-102324

PATIENT
  Age: 26 Year
  Sex: Male

DRUGS (2)
  1. MEROPENEM. [Interacting]
     Active Substance: MEROPENEM
     Indication: KLEBSIELLA INFECTION
     Dosage: UNK
     Route: 065
  2. VALPROATE DE SODIUM [Suspect]
     Active Substance: VALPROATE SODIUM
     Indication: PARTIAL SEIZURES
     Dosage: UNK
     Route: 065

REACTIONS (2)
  - Drug interaction [Unknown]
  - Drug level decreased [Unknown]
